FAERS Safety Report 22181216 (Version 1)
Quarter: 2023Q2

REPORT INFORMATION
  Report Type: Spontaneous
  Country: US (occurrence: None)
  Receive Date: 20230405
  Receipt Date: 20230405
  Transmission Date: 20230722
  Serious: No
  Sender: FDA-Public Use
  Company Number: None

PATIENT
  Age: 73 Year
  Sex: Female
  Weight: 60.24 kg

DRUGS (21)
  1. KISQALI FEMARA CO-PACK [Suspect]
     Active Substance: LETROZOLE\RIBOCICLIB
     Indication: Breast cancer female
     Dosage: 400-2.5 MG DAILY ORAL? ?
     Route: 048
  2. ADVIL [Concomitant]
     Active Substance: IBUPROFEN
  3. ALCLOMETASONE DIPROPIONATE [Concomitant]
     Active Substance: ALCLOMETASONE DIPROPIONATE
  4. Antifungal (Clotrimazole) External [Concomitant]
  5. Biotin 5000 [Concomitant]
  6. CALTRATE 600+D [Concomitant]
  7. CLARITIN [Concomitant]
     Active Substance: LORATADINE
  8. CLEAR EYES NATURAL TEARS [Concomitant]
     Active Substance: POLYVINYL ALCOHOL\POVIDONE
  9. FAMOTIDINE [Concomitant]
     Active Substance: FAMOTIDINE
  10. Ketocanazole [Concomitant]
  11. METRONIDAZOLE [Concomitant]
     Active Substance: METRONIDAZOLE
  12. Multivital [Concomitant]
  13. OLMESARTAN [Concomitant]
     Active Substance: OLMESARTAN
  14. PANTOPRAZOLE [Concomitant]
     Active Substance: PANTOPRAZOLE
  15. PRAMCORT [Concomitant]
     Active Substance: HYDROCORTISONE ACETATE\PRAMOXINE HYDROCHLORIDE
  16. PREVIDENT 5000 PLUS SPEARMINT [Concomitant]
     Active Substance: SODIUM FLUORIDE
  17. PROTONIX [Concomitant]
     Active Substance: PANTOPRAZOLE SODIUM
  18. TYLENOL [Concomitant]
     Active Substance: ACETAMINOPHEN
  19. VITAMIN D [Concomitant]
     Active Substance: VITAMIN D NOS
  20. VOLTAREN [Concomitant]
     Active Substance: DICLOFENAC SODIUM
  21. External Gel 1% [Concomitant]

REACTIONS (3)
  - Pharyngitis streptococcal [None]
  - Pruritus [None]
  - Erythema [None]
